FAERS Safety Report 7804171-6 (Version None)
Quarter: 2011Q4

REPORT INFORMATION
  Report Type: 
  Country: None (occurrence: None)
  Receive Date: 20111010
  Receipt Date: 20111005
  Transmission Date: 20120403
  Serious: Yes (Hospitalization)
  Sender: FDA-Public Use
  Company Number: US-SHIRE-ALL1-2011-03762

PATIENT
  Sex: Male
  Weight: 25.17 kg

DRUGS (3)
  1. VYVANSE [Suspect]
     Dosage: 40 MG, 1X/DAY:QD
     Route: 048
     Dates: start: 20080101, end: 20100101
  2. VYVANSE [Suspect]
     Indication: ATTENTION DEFICIT/HYPERACTIVITY DISORDER
     Dosage: 50 MG, 1X/DAY:QD
     Route: 048
     Dates: start: 20080101, end: 20080101
  3. VYVANSE [Suspect]
     Dosage: 30 MG, 1X/DAY:QD
     Route: 048
     Dates: start: 20100101

REACTIONS (4)
  - OPPOSITIONAL DEFIANT DISORDER [None]
  - IMPULSIVE BEHAVIOUR [None]
  - POST-TRAUMATIC STRESS DISORDER [None]
  - WEIGHT GAIN POOR [None]
